FAERS Safety Report 8901990 (Version 1)
Quarter: 2012Q4

REPORT INFORMATION
  Report Type: 
  Country: US (occurrence: US)
  Receive Date: 20121112
  Receipt Date: 20121112
  Transmission Date: 20130627
  Serious: Yes (Other)
  Sender: FDA-Public Use
  Company Number: US-BAYER-2012-116577

PATIENT
  Age: 46 Year
  Sex: Female
  Weight: 107 kg

DRUGS (18)
  1. YASMIN [Suspect]
  2. VOLTAREN XR [Concomitant]
     Dosage: 100 mg, daily
     Route: 048
  3. PAXIL [Concomitant]
     Dosage: 40 mg, daily
     Route: 048
  4. DARVOCET-N [Concomitant]
     Dosage: 1 tablet every 8 hours
     Route: 048
  5. ATACAND [CANDESARTAN CILEXETIL] [Concomitant]
     Dosage: 16 mg, daily
     Route: 048
  6. TRIAMTERENE AND HYDROCHLOROTHIAZIDE [Concomitant]
     Dosage: 75/50 mg daily
     Route: 048
  7. METOPROLOL [Concomitant]
     Dosage: 100 mg, BID
     Route: 048
  8. METFORMIN HCL [Concomitant]
     Dosage: 500 mg, BID
     Route: 048
  9. KLOR-CON [Concomitant]
     Dosage: 10 mEq, DAILY
  10. QUININE SULFATE [Concomitant]
     Dosage: 325 mg, daily
     Route: 048
  11. HYDROCHLOROTHIAZIDE W/VALSARTAN [Concomitant]
     Dosage: 160/12.5 mg daily
     Route: 048
  12. NEURONTIN [Concomitant]
     Dosage: 100 mg, TID
     Route: 048
  13. CLONAZEPAM [Concomitant]
     Dosage: 2 mg, UNK
  14. LASIX [Concomitant]
     Indication: SWELLING NOS
     Dosage: 20 mg prn to 40 mg tid
  15. CLONIDINE [Concomitant]
     Dosage: 0.1 mg, UNK
  16. NAPROXEN [Concomitant]
     Dosage: 500 mg, TID with meals
  17. DIOVAN [Concomitant]
  18. DILTIAZEM HCL [Concomitant]
     Indication: HYPERTENSION

REACTIONS (2)
  - Deep vein thrombosis [None]
  - Deep vein thrombosis [None]
